FAERS Safety Report 11765256 (Version 1)
Quarter: 2015Q4

REPORT INFORMATION
  Report Type: Spontaneous
  Country: US (occurrence: US)
  Receive Date: 20151120
  Receipt Date: 20151120
  Transmission Date: 20160304
  Serious: No
  Sender: FDA-Public Use
  Company Number: US-ELI_LILLY_AND_COMPANY-US201401008128

PATIENT
  Sex: Female

DRUGS (8)
  1. FORTEO [Suspect]
     Active Substance: TERIPARATIDE
     Indication: OSTEOPOROSIS
     Dosage: UNK, QD
     Route: 065
     Dates: start: 20140107
  2. DIOVAN [Concomitant]
     Active Substance: VALSARTAN
  3. BETAMETHASONE. [Concomitant]
     Active Substance: BETAMETHASONE
     Indication: RASH
  4. VAGIFEM [Concomitant]
     Active Substance: ESTRADIOL
     Route: 067
  5. CLOTRIMAZOLE. [Concomitant]
     Active Substance: CLOTRIMAZOLE
     Indication: RASH
  6. SPIRONOLACTONE. [Concomitant]
     Active Substance: SPIRONOLACTONE
     Dosage: UNK, BID
  7. SYNTHROID [Concomitant]
     Active Substance: LEVOTHYROXINE SODIUM
  8. B12                                /00056202/ [Concomitant]
     Dosage: UNK, MONTHLY (1/M)

REACTIONS (11)
  - Epistaxis [Recovering/Resolving]
  - Memory impairment [Unknown]
  - Weight increased [Unknown]
  - Insomnia [Unknown]
  - Nausea [Recovering/Resolving]
  - Injection site bruising [Recovering/Resolving]
  - Abdominal distension [Unknown]
  - Nasal discomfort [Unknown]
  - Peripheral swelling [Unknown]
  - Discomfort [Unknown]
  - Muscle spasms [Recovered/Resolved]

NARRATIVE: CASE EVENT DATE: 201401
